FAERS Safety Report 17093921 (Version 3)
Quarter: 2019Q4

REPORT INFORMATION
  Report Type: Report from Study
  Country: GB (occurrence: GB)
  Receive Date: 20191129
  Receipt Date: 20191220
  Transmission Date: 20200122
  Serious: Yes (Death, Life-Threatening, Hospitalization)
  Sender: FDA-Public Use
  Company Number: GB-ASTRAZENECA-2019SF70830

PATIENT
  Age: 66 Year
  Sex: Male
  Weight: 80.1 kg

DRUGS (5)
  1. LAXIDO [Concomitant]
     Active Substance: POLYETHYLENE GLYCOL 3350\POTASSIUM CHLORIDE\SODIUM BICARBONATE\SODIUM CHLORIDE
     Indication: CONSTIPATION PROPHYLAXIS
     Dosage: 1-2 SACHETS
     Route: 048
     Dates: start: 20191119
  2. PARLODEL [Concomitant]
     Active Substance: BROMOCRIPTINE MESYLATE
     Indication: HEADACHE
     Dosage: 30/500 MG AS REQUIRED
     Route: 048
     Dates: start: 20191102
  3. CISPLATIN. [Suspect]
     Active Substance: CISPLATIN
     Indication: HEAD AND NECK CANCER
     Route: 042
     Dates: start: 20191028
  4. RADIOTHERAPY [Suspect]
     Active Substance: RADIATION THERAPY
     Indication: HEAD AND NECK CANCER
     Dosage: 21 FRACTIONS 42.0 GY
     Route: 065
  5. OLAPARIB. [Suspect]
     Active Substance: OLAPARIB
     Indication: HEAD AND NECK CANCER
     Route: 048
     Dates: start: 20191021

REACTIONS (3)
  - Neutrophil count decreased [Not Recovered/Not Resolved]
  - Myocardial infarction [Fatal]
  - Sepsis [Not Recovered/Not Resolved]

NARRATIVE: CASE EVENT DATE: 20191125
